FAERS Safety Report 12389304 (Version 1)
Quarter: 2016Q2

REPORT INFORMATION
  Report Type: Spontaneous
  Country: US (occurrence: None)
  Receive Date: 20160519
  Receipt Date: 20160519
  Transmission Date: 20160815
  Serious: Yes (Death)
  Sender: FDA-Public Use
  Company Number: None

PATIENT
  Age: 10 Year
  Sex: Female

DRUGS (8)
  1. REVATIO [Suspect]
     Active Substance: SILDENAFIL CITRATE
     Indication: PULMONARY ARTERIAL HYPERTENSION
     Route: 048
     Dates: start: 20150801, end: 201604
  2. ALBUTEROL. [Concomitant]
     Active Substance: ALBUTEROL
  3. SODIUM CHLOR [Concomitant]
  4. CAYSTON [Concomitant]
     Active Substance: AZTREONAM
  5. METHADONE [Concomitant]
     Active Substance: METHADONE HYDROCHLORIDE
  6. BUDESONIDE. [Concomitant]
     Active Substance: BUDESONIDE
  7. MORPHINE [Concomitant]
     Active Substance: MORPHINE
  8. FLORANEX [Concomitant]
     Active Substance: LACTOBACILLUS ACIDOPHILUS\LACTOBACILLUS DELBRUECKII SUBSP. BULGARICUS

REACTIONS (1)
  - Death [None]

NARRATIVE: CASE EVENT DATE: 20160408
